FAERS Safety Report 7206193-5 (Version None)
Quarter: 2010Q4

REPORT INFORMATION
  Report Type: 
  Country: None (occurrence: None)
  Receive Date: 20101221
  Receipt Date: 20101208
  Transmission Date: 20110411
  Serious: Yes (Other)
  Sender: FDA-Public Use
  Company Number: 012217

PATIENT
  Age: 48 Year
  Sex: Male

DRUGS (5)
  1. BUSULFEX [Suspect]
     Indication: STEM CELL TRANSPLANT
  2. ANTITHYMOCYTE IMMUNOGLOBULIN [Concomitant]
  3. FLUDARABINE [Concomitant]
  4. CYCLOSPORINE [Concomitant]
  5. METHOTREXATE [Concomitant]

REACTIONS (2)
  - GRAFT LOSS [None]
  - LEUKAEMIA RECURRENT [None]
